FAERS Safety Report 11864611 (Version 1)
Quarter: 2015Q4

REPORT INFORMATION
  Report Type: Spontaneous
  Country: CH (occurrence: IT)
  Receive Date: 20151223
  Receipt Date: 20151223
  Transmission Date: 20160305
  Serious: Yes (Other)
  Sender: FDA-Public Use
  Company Number: CH-LPDUSPRD-20151045

PATIENT
  Age: 75 Year
  Sex: Male

DRUGS (1)
  1. FERINJECT [Suspect]
     Active Substance: FERRIC CARBOXYMALTOSE
     Dosage: 500 MG
     Route: 041
     Dates: start: 20151112, end: 20151112

REACTIONS (4)
  - Hyperhidrosis [Unknown]
  - Loss of consciousness [Unknown]
  - Feeling hot [Unknown]
  - Hypotension [Unknown]

NARRATIVE: CASE EVENT DATE: 20151112
